FAERS Safety Report 23019799 (Version 1)
Quarter: 2023Q4

REPORT INFORMATION
  Report Type: Spontaneous
  Country: CA (occurrence: None)
  Receive Date: 20231003
  Receipt Date: 20231003
  Transmission Date: 20240109
  Serious: Yes (Death)
  Sender: FDA-Public Use
  Company Number: CA-ROCHE-3429657

PATIENT
  Sex: Female

DRUGS (1)
  1. RITUXIMAB [Suspect]
     Active Substance: RITUXIMAB
     Indication: Product used for unknown indication
     Route: 065

REACTIONS (9)
  - Acute myeloid leukaemia [Fatal]
  - Drug ineffective [Fatal]
  - Dysplasia [Fatal]
  - Gene mutation [Fatal]
  - Leukoerythroblastosis [Fatal]
  - Myelodysplastic syndrome [Fatal]
  - Myeloid leukaemia [Fatal]
  - Pancytopenia [Fatal]
  - Second primary malignancy [Fatal]
